FAERS Safety Report 15608013 (Version 2)
Quarter: 2018Q4

REPORT INFORMATION
  Report Type: Spontaneous
  Country: TW (occurrence: TW)
  Receive Date: 20181112
  Receipt Date: 20181114
  Transmission Date: 20190205
  Serious: Yes (Other)
  Sender: FDA-Public Use
  Company Number: TW-TERSERA THERAPEUTICS LLC-TSR2018002522

PATIENT

DRUGS (2)
  1. ZOLADEX [Suspect]
     Active Substance: GOSERELIN ACETATE
     Indication: BREAST CANCER FEMALE
     Dosage: UNK, UNK
     Route: 058
  2. NOLVADEX [Suspect]
     Active Substance: TAMOXIFEN CITRATE
     Indication: BREAST CANCER FEMALE
     Dosage: UNK, UNK
     Route: 048

REACTIONS (2)
  - Metastases to lymph nodes [Unknown]
  - Metastases to bone [Unknown]

NARRATIVE: CASE EVENT DATE: 201801
